FAERS Safety Report 25071196 (Version 7)
Quarter: 2025Q4

REPORT INFORMATION
  Report Type: Report from Study
  Country: US (occurrence: None)
  Receive Date: 20250312
  Receipt Date: 20251114
  Transmission Date: 20260118
  Serious: Yes (Other)
  Sender: UCB
  Company Number: US-UCBSA-2024052004

PATIENT
  Age: 1 Year
  Weight: 12.8 kg

DRUGS (14)
  1. FENFLURAMINE [Suspect]
     Active Substance: FENFLURAMINE
     Indication: Lennox-Gastaut syndrome
     Dosage: 1.5 MILLILITER, 2X/DAY (BID)
  2. FENFLURAMINE [Suspect]
     Active Substance: FENFLURAMINE
     Indication: Seizure
     Dosage: 1.5 MILLILITER, 2X/DAY (BID)
  3. FENFLURAMINE [Suspect]
     Active Substance: FENFLURAMINE
     Dosage: 1.2 MILLILITER, 2X/DAY (BID), 7 DAYS
  4. FENFLURAMINE [Suspect]
     Active Substance: FENFLURAMINE
     Dosage: 0.9 MILLILITER, 2X/DAY (BID)
  5. FENFLURAMINE [Suspect]
     Active Substance: FENFLURAMINE
     Dosage: 0.6 MILLILITER, 2X/DAY (BID)
  6. FENFLURAMINE [Suspect]
     Active Substance: FENFLURAMINE
     Dosage: 0.3 MILLILITER, 2X/DAY (BID)
  7. FENFLURAMINE [Suspect]
     Active Substance: FENFLURAMINE
     Dosage: 7.92 MILLIGRAM PER DAY
  8. FENFLURAMINE [Suspect]
     Active Substance: FENFLURAMINE
     Dosage: 2 MILLILITER, 2X/DAY (BID)
  9. FENFLURAMINE [Suspect]
     Active Substance: FENFLURAMINE
     Dosage: 2 MILLILITER, 2X/DAY (BID)
  10. FENFLURAMINE [Suspect]
     Active Substance: FENFLURAMINE
     Dosage: 1.5 MILLILITER, 2X/DAY (BID)
  11. FENFLURAMINE [Suspect]
     Active Substance: FENFLURAMINE
     Dosage: 1.2 MILLILITER, 2X/DAY (BID)
  12. FENFLURAMINE [Suspect]
     Active Substance: FENFLURAMINE
     Dosage: 0.9 MILLILITER, 2X/DAY (BID)
  13. FENFLURAMINE [Suspect]
     Active Substance: FENFLURAMINE
     Dosage: 0.6 MILLILITER, 2X/DAY (BID)
  14. FENFLURAMINE [Suspect]
     Active Substance: FENFLURAMINE
     Dosage: 0.3 MILLILITER, 2X/DAY (BID)

REACTIONS (14)
  - Seizure [Recovered/Resolved]
  - Mitral valve incompetence [Not Recovered/Not Resolved]
  - Lethargy [Unknown]
  - Gastrointestinal disorder [Unknown]
  - Personality change [Not Recovered/Not Resolved]
  - Decreased appetite [Not Recovered/Not Resolved]
  - Teething [Not Recovered/Not Resolved]
  - Ear infection [Not Recovered/Not Resolved]
  - Movement disorder [Unknown]
  - Blood iron decreased [Not Recovered/Not Resolved]
  - Hypervigilance [Recovered/Resolved]
  - Visual impairment [Recovered/Resolved]
  - Drug ineffective [Unknown]
  - Off label use [Unknown]
